FAERS Safety Report 6455031-7 (Version None)
Quarter: 2009Q4

REPORT INFORMATION
  Report Type: 
  Country: None (occurrence: None)
  Receive Date: 20091118
  Receipt Date: 20091110
  Transmission Date: 20100525
  Serious: Yes (Hospitalization)
  Sender: FDA-Public Use
  Company Number: 2009SP029230

PATIENT
  Sex: Female

DRUGS (3)
  1. NUVARING [Suspect]
     Indication: DRUG USE FOR UNKNOWN INDICATION
     Dates: start: 20080901, end: 20081001
  2. NUVARING [Suspect]
     Indication: DRUG USE FOR UNKNOWN INDICATION
     Dates: start: 20081001, end: 20081101
  3. NUVARING [Suspect]
     Indication: DRUG USE FOR UNKNOWN INDICATION
     Dates: end: 20081207

REACTIONS (4)
  - APPENDICECTOMY [None]
  - DIARRHOEA [None]
  - DIVERTICULITIS [None]
  - WHITE BLOOD CELLS STOOL POSITIVE [None]
